FAERS Safety Report 9935500 (Version 1)
Quarter: 2014Q1

REPORT INFORMATION
  Report Type: Spontaneous
  Country: US (occurrence: US)
  Receive Date: 20140228
  Receipt Date: 20140228
  Transmission Date: 20141002
  Serious: No
  Sender: FDA-Public Use
  Company Number: US-PFIZER INC-2014057449

PATIENT
  Age: 67 Year
  Sex: Male
  Weight: 79.37 kg

DRUGS (2)
  1. TIKOSYN [Suspect]
     Indication: ATRIAL FIBRILLATION
     Dosage: 500 UG, 2X/DAY
     Route: 048
     Dates: start: 201401, end: 201402
  2. COREG [Concomitant]
     Dosage: UNK

REACTIONS (1)
  - Rash [Recovered/Resolved]
